FAERS Safety Report 14387965 (Version 2)
Quarter: 2019Q3

REPORT INFORMATION
  Report Type: Spontaneous
  Country: US (occurrence: US)
  Receive Date: 20180115
  Receipt Date: 20190823
  Transmission Date: 20191004
  Serious: Yes (Other)
  Sender: FDA-Public Use
  Company Number: US-SA-2017SA201667

PATIENT
  Age: 53 Year
  Sex: Female
  Weight: 52 kg

DRUGS (12)
  1. FLUCLOROLONE ACETONIDE [Concomitant]
  2. DIVALPROEX SODIUM. [Concomitant]
     Active Substance: DIVALPROEX SODIUM
  3. TAXOTERE [Suspect]
     Active Substance: DOCETAXEL
     Dosage: UNK UNK,Q3W
     Route: 042
     Dates: start: 20080806, end: 20080806
  4. NORVASC [Concomitant]
     Active Substance: AMLODIPINE BESYLATE
     Dosage: UNK UNK,UNK
     Dates: start: 199807
  5. RISPERIDONE. [Concomitant]
     Active Substance: RISPERIDONE
  6. MIRTAZAPINE. [Concomitant]
     Active Substance: MIRTAZAPINE
  7. AMLODIPINE [Concomitant]
     Active Substance: AMLODIPINE BESYLATE
     Dosage: UNK UNK,UNK
     Dates: start: 199807
  8. CISPLATIN. [Concomitant]
     Active Substance: CISPLATIN
     Indication: NON-SMALL CELL LUNG CANCER
     Dosage: UNK UNK,Q3W
     Dates: start: 20080619, end: 20080619
  9. CISPLATIN. [Concomitant]
     Active Substance: CISPLATIN
     Dosage: UNK UNK,Q3W
     Dates: start: 20090916, end: 20090916
  10. FLUOCINOLONE [Concomitant]
     Active Substance: FLUOCINOLONE
  11. TAXOTERE [Suspect]
     Active Substance: DOCETAXEL
     Indication: NON-SMALL CELL LUNG CANCER
     Dosage: UNK UNK,Q3W
     Route: 042
     Dates: start: 20080619, end: 20080619
  12. BUPROPION. [Concomitant]
     Active Substance: BUPROPION

REACTIONS (2)
  - Psychological trauma [Unknown]
  - Alopecia [Recovering/Resolving]

NARRATIVE: CASE EVENT DATE: 200806
